FAERS Safety Report 4273889-7 (Version None)
Quarter: 2004Q1

REPORT INFORMATION
  Report Type: 
  Country: None (occurrence: None)
  Receive Date: 20040115
  Receipt Date: 20031230
  Transmission Date: 20041129
  Serious: Yes (Hospitalization, Other)
  Sender: FDA-Public Use
  Company Number: USA031253701

PATIENT
  Age: 75 Year
  Sex: Female

DRUGS (13)
  1. FORTEO [Suspect]
     Dates: start: 20030501
  2. CALCIUM [Concomitant]
  3. WELLBUTRIN [Concomitant]
  4. BEXTRA [Concomitant]
  5. LEXAPRO [Concomitant]
  6. ATENOLOL [Concomitant]
  7. LIPITOR [Concomitant]
  8. ASPIRIN [Concomitant]
  9. NITROGLYCERIN [Concomitant]
  10. TRICOR [Concomitant]
  11. REGLAN [Concomitant]
  12. XALATAN [Concomitant]
  13. TIMOLOL MALEATE [Concomitant]

REACTIONS (6)
  - BLOOD CALCIUM DECREASED [None]
  - FALL [None]
  - FEELING ABNORMAL [None]
  - HAND FRACTURE [None]
  - HIP FRACTURE [None]
  - UPPER LIMB FRACTURE [None]
